FAERS Safety Report 20896155 (Version 1)
Quarter: 2022Q2

REPORT INFORMATION
  Report Type: Spontaneous
  Country: US (occurrence: None)
  Receive Date: 20220531
  Receipt Date: 20220531
  Transmission Date: 20220720
  Serious: Yes (Hospitalization)
  Sender: FDA-Public Use
  Company Number: None

PATIENT
  Age: 81 Year
  Sex: Female
  Weight: 77.61 kg

DRUGS (11)
  1. CAPECITABINE [Suspect]
     Active Substance: CAPECITABINE
     Indication: Colon cancer
     Dosage: FREQUENCY : TWICE A DAY;?
     Route: 048
     Dates: start: 20220419, end: 202205
  2. CAPECITABINE [Suspect]
     Active Substance: CAPECITABINE
     Dosage: FREQUENCY : TWICE A DAY;?
     Route: 048
     Dates: start: 20220419, end: 202205
  3. AMLODIPINE [Concomitant]
  4. ATORVASTATIN [Concomitant]
  5. CALCIUM CITRATE+D [Concomitant]
  6. DIVALPROEX [Concomitant]
  7. IRBESARTAN [Concomitant]
  8. METOPROLOL [Concomitant]
     Active Substance: METOPROLOL
  9. MULTI-VITAMIN [Concomitant]
  10. RISPERIDONE [Concomitant]
     Active Substance: RISPERIDONE
  11. VITAMIN B-12 [Concomitant]

REACTIONS (2)
  - Renal failure [None]
  - Therapy cessation [None]
